FAERS Safety Report 7678572-3 (Version None)
Quarter: 2011Q3

REPORT INFORMATION
  Report Type: 
  Country: None (occurrence: None)
  Receive Date: 20110811
  Receipt Date: 20110801
  Transmission Date: 20111222
  Serious: Yes (Hospitalization)
  Sender: FDA-Public Use
  Company Number: US-JNJFOC-20101002757

PATIENT
  Sex: Female
  Weight: 44.8 kg

DRUGS (9)
  1. INFLIXIMAB, RECOMBINANT [Suspect]
     Route: 042
     Dates: start: 20090128
  2. CLINDAMYCIN [Concomitant]
  3. METRONIDAZOLE [Concomitant]
  4. CIMZIA [Concomitant]
  5. INFLIXIMAB, RECOMBINANT [Suspect]
     Indication: CROHN'S DISEASE
     Route: 042
     Dates: start: 20081216
  6. RIFAXIMIN [Concomitant]
  7. TYLENOL-500 [Concomitant]
  8. MULTI-VITAMINS [Concomitant]
  9. LO/OVRAL [Concomitant]

REACTIONS (5)
  - NAUSEA [None]
  - ABDOMINAL ABSCESS [None]
  - CONVULSION [None]
  - ABDOMINAL PAIN [None]
  - ILEAL STENOSIS [None]
